FAERS Safety Report 17462538 (Version 2)
Quarter: 2021Q2

REPORT INFORMATION
  Report Type: Report from Study
  Country: JP (occurrence: JP)
  Receive Date: 20200226
  Receipt Date: 20210622
  Transmission Date: 20210716
  Serious: Yes (Death, Life-Threatening, Hospitalization, Other)
  Sender: FDA-Public Use
  Company Number: JP-AMGEN-JPNCT2020032670

PATIENT
  Age: 82 Year
  Sex: Female

DRUGS (12)
  1. MEROPENEM. [Concomitant]
     Active Substance: MEROPENEM
     Indication: DIVERTICULITIS
     Dosage: UNK
     Route: 065
  2. LEVOFLOXACIN HEMIHYDRATE [Concomitant]
     Active Substance: LEVOFLOXACIN
     Indication: DIVERTICULITIS
     Dosage: UNK
     Route: 048
  3. JADENU [Concomitant]
     Active Substance: DEFERASIROX
     Indication: PRODUCT USED FOR UNKNOWN INDICATION
     Dosage: UNK
     Route: 048
  4. CEFEPIME [Concomitant]
     Active Substance: CEFEPIME HYDROCHLORIDE
     Indication: SEPSIS
     Dosage: UNK
     Route: 065
  5. ROMIPLOSTIM [Suspect]
     Active Substance: ROMIPLOSTIM
     Dosage: 15 MICROGRAM/KILOGRAM
     Route: 058
     Dates: start: 20190905, end: 20190905
  6. ROMIPLOSTIM [Suspect]
     Active Substance: ROMIPLOSTIM
     Dosage: 15 MICROGRAM/KILOGRAM, QWK
     Route: 058
     Dates: start: 20191126, end: 20191217
  7. NORADRENALINE [Concomitant]
     Active Substance: NOREPINEPHRINE
     Indication: SEPSIS
     Dosage: UNK
     Route: 065
  8. GENTACIN [Concomitant]
     Active Substance: GENTAMICIN SULFATE
     Indication: SEPSIS
     Dosage: UNK
     Route: 065
  9. CEFTRIAXONE SODIUM HYDRATE [Concomitant]
     Active Substance: CEFTRIAXONE SODIUM
     Indication: SEPSIS
     Dosage: UNK
     Route: 065
  10. PRIMOBOLAN [Concomitant]
     Active Substance: METHENOLONE
     Indication: APLASTIC ANAEMIA
     Dosage: UNK
     Route: 048
  11. FEBURIC [Concomitant]
     Active Substance: FEBUXOSTAT
     Indication: HYPERURICAEMIA
     Dosage: UNK
     Route: 048
  12. ROMIPLOSTIM [Suspect]
     Active Substance: ROMIPLOSTIM
     Indication: APLASTIC ANAEMIA
     Dosage: 10 MICROGRAM/KILOGRAM, QWK
     Route: 058
     Dates: start: 20190808, end: 20190829

REACTIONS (4)
  - Sepsis [Recovering/Resolving]
  - Cerebral haemorrhage [Not Recovered/Not Resolved]
  - Acute myeloid leukaemia [Fatal]
  - Diverticulitis [Recovering/Resolving]

NARRATIVE: CASE EVENT DATE: 20190909
